FAERS Safety Report 26204974 (Version 1)
Quarter: 2025Q4

REPORT INFORMATION
  Report Type: Spontaneous
  Country: CN (occurrence: CN)
  Receive Date: 20251227
  Receipt Date: 20251227
  Transmission Date: 20260118
  Serious: Yes (Other)
  Sender: CSL BEHRING
  Company Number: CN-BEH-2025230104

PATIENT
  Age: 77 Year
  Sex: Female
  Weight: 60 kg

DRUGS (1)
  1. ALBURX [Suspect]
     Active Substance: ALBUMIN HUMAN
     Indication: Supplementation therapy
     Dosage: 10 G, OD
     Route: 041
     Dates: start: 20251209, end: 20251211

REACTIONS (2)
  - Diarrhoea [Recovering/Resolving]
  - Faecal occult blood positive [Recovering/Resolving]

NARRATIVE: CASE EVENT DATE: 20251211
